FAERS Safety Report 10192897 (Version 1)
Quarter: 2014Q2

REPORT INFORMATION
  Report Type: Spontaneous
  Country: US (occurrence: US)
  Receive Date: 20140523
  Receipt Date: 20140523
  Transmission Date: 20141212
  Serious: Yes (Hospitalization)
  Sender: FDA-Public Use
  Company Number: US-ASTRAZENECA-2014SE33456

PATIENT
  Age: 17 Month
  Sex: Female
  Weight: 7.8 kg

DRUGS (6)
  1. SYNAGIS [Suspect]
     Route: 030
  2. FLOVENT [Concomitant]
     Dosage: 2 PUFFS TWO TIMES A DAY
  3. ALBUTEROL [Concomitant]
     Dosage: EVERY 3 TO 4 HOURS AS NEEDED
  4. FAMOTIDINE [Concomitant]
     Dosage: DAILY
  5. FLU SHOT [Concomitant]
  6. EPI-PEN JR [Concomitant]
     Indication: HYPERSENSITIVITY
     Dosage: AS NEEDED

REACTIONS (7)
  - Breath holding [Unknown]
  - Cyanosis [Unknown]
  - Hypoxia [Unknown]
  - Pneumonia [Unknown]
  - Respiratory syncytial virus bronchiolitis [Unknown]
  - Hypersensitivity [Unknown]
  - Ear infection [Unknown]
